FAERS Safety Report 8071485-7 (Version None)
Quarter: 2012Q1

REPORT INFORMATION
  Report Type: 
  Country: None (occurrence: None)
  Receive Date: 20120125
  Receipt Date: 20120117
  Transmission Date: 20120608
  Serious: Yes (Hospitalization, Other)
  Sender: FDA-Public Use
  Company Number: CA-ROCHE-GNE310523

PATIENT
  Sex: Female

DRUGS (3)
  1. BIAXIN (CANADA) [Concomitant]
  2. XOLAIR [Suspect]
     Indication: ASTHMA
     Dosage: 300 MG, 1/MONTH
     Route: 058
     Dates: start: 20100513
  3. XOLAIR [Suspect]
     Dosage: 300 MG, 1/MONTH
     Route: 058
     Dates: start: 20100930

REACTIONS (8)
  - MALAISE [None]
  - URINARY TRACT INFECTION [None]
  - NASOPHARYNGITIS [None]
  - ANAPHYLACTIC REACTION [None]
  - DYSPNOEA [None]
  - LOWER RESPIRATORY TRACT INFECTION [None]
  - EAR PAIN [None]
  - NASAL CONGESTION [None]
